FAERS Safety Report 7617351-X (Version None)
Quarter: 2011Q3

REPORT INFORMATION
  Report Type: 
  Country: None (occurrence: None)
  Receive Date: 20110718
  Receipt Date: 20110705
  Transmission Date: 20111222
  Serious: Yes (Other)
  Sender: FDA-Public Use
  Company Number: ES-UCBSA-036913

PATIENT
  Age: 52 Year
  Sex: Female

DRUGS (2)
  1. VORICONAZOLE [Interacting]
     Dosage: UNKNOWN DOSE
  2. OMEPRAZOLE [Suspect]
     Dosage: UNKNOWN DOSE

REACTIONS (1)
  - DRUG INTERACTION [None]
